FAERS Safety Report 25021176 (Version 4)
Quarter: 2025Q2

REPORT INFORMATION
  Report Type: Spontaneous
  Country: US (occurrence: US)
  Receive Date: 20250228
  Receipt Date: 20250401
  Transmission Date: 20250717
  Serious: Yes (Hospitalization, Other)
  Sender: GLAXOSMITHKLINE
  Company Number: US-GLAXOSMITHKLINE INC-US2025022320

PATIENT

DRUGS (1)
  1. NUCALA [Suspect]
     Active Substance: MEPOLIZUMAB
     Indication: Asthma
     Dosage: UNK UNK, Q4W , 1 INJECTION
     Dates: start: 20240515

REACTIONS (7)
  - Atrial fibrillation [Unknown]
  - Pneumonia [Unknown]
  - Renal failure [Unknown]
  - Oral candidiasis [Unknown]
  - Pharyngitis streptococcal [Unknown]
  - Illness [Not Recovered/Not Resolved]
  - Product dose omission issue [Unknown]

NARRATIVE: CASE EVENT DATE: 20250113
